FAERS Safety Report 16544365 (Version 1)
Quarter: 2019Q3

REPORT INFORMATION
  Report Type: Spontaneous
  Country: US (occurrence: US)
  Receive Date: 20190709
  Receipt Date: 20190709
  Transmission Date: 20191004
  Serious: Yes (Hospitalization, Other)
  Sender: FDA-Public Use
  Company Number: US-DRREDDYS-USA/USA/19/0111741

PATIENT
  Age: 83 Year
  Sex: Female

DRUGS (8)
  1. CEFTAROLINE FOSAMIL [Suspect]
     Active Substance: CEFTAROLINE FOSAMIL
     Indication: ENDOCARDITIS
     Dosage: WAS TRANSITIONED BACK TO CEFTAROLINE FOSAMIL FOR 4 WEEKS
     Route: 065
  2. VANCOMYCIN [Suspect]
     Active Substance: VANCOMYCIN
     Indication: ENDOCARDITIS
     Dosage: TREATMENT WAS SWITCHED TO VANCOMYCIN
     Route: 065
  3. CEFTAROLINE FOSAMIL [Suspect]
     Active Substance: CEFTAROLINE FOSAMIL
     Indication: STAPHYLOCOCCAL INFECTION
     Dosage: ON HOSPITALISATION DAY 4, OFF-LABEL DOSING FREQUENCY
     Route: 065
  4. DAPTOMYCIN FOR INJECTION [Suspect]
     Active Substance: DAPTOMYCIN
     Indication: STAPHYLOCOCCAL INFECTION
     Route: 065
  5. DAPTOMYCIN FOR INJECTION [Suspect]
     Active Substance: DAPTOMYCIN
     Indication: ENDOCARDITIS
     Dosage: 6-WEEK COURSE
     Route: 065
  6. DAPTOMYCIN FOR INJECTION [Suspect]
     Active Substance: DAPTOMYCIN
     Dosage: ON HOSPITALISATION DAY 15, TO FACILITATE DISCHARGE, HER TREATMENT WAS SWITCHED BACK TO DAPTOMYCIN
     Route: 065
  7. DAPTOMYCIN FOR INJECTION [Suspect]
     Active Substance: DAPTOMYCIN
     Dosage: TOTAL 4 WEEKS
     Route: 065
  8. VANCOMYCIN [Suspect]
     Active Substance: VANCOMYCIN
     Indication: STAPHYLOCOCCAL INFECTION
     Dosage: INITIALLY
     Route: 065

REACTIONS (5)
  - Drug resistance [Unknown]
  - Transaminases increased [Unknown]
  - Eosinophilia [Unknown]
  - Rash [Unknown]
  - Renal failure [Unknown]
